FAERS Safety Report 24210340 (Version 3)
Quarter: 2024Q3

REPORT INFORMATION
  Report Type: Report from Study
  Country: US (occurrence: US)
  Receive Date: 20240814
  Receipt Date: 20240916
  Transmission Date: 20241017
  Serious: Yes (Life-Threatening, Other)
  Sender: IOVANCE BIOTHERAPEUTICS
  Company Number: 2024IOV000052

PATIENT
  Age: 37 Year
  Sex: Male
  Weight: 70.9 kg

DRUGS (6)
  1. ALDESLEUKIN [Suspect]
     Active Substance: ALDESLEUKIN
     Indication: Product used for unknown indication
     Dosage: DOSE 1 AND 2
     Route: 065
     Dates: start: 20240723
  2. ALDESLEUKIN [Suspect]
     Active Substance: ALDESLEUKIN
     Dosage: DOSE 3 AND 4
     Route: 065
     Dates: start: 20240724
  3. ALDESLEUKIN [Suspect]
     Active Substance: ALDESLEUKIN
     Dosage: DOSE 5 AND 6
     Route: 065
  4. CYCLOPHOSPHAMIDE [Suspect]
     Active Substance: CYCLOPHOSPHAMIDE
     Indication: Product used for unknown indication
     Dosage: UNK, QD
     Route: 065
     Dates: start: 20240718, end: 20240719
  5. FLUDARABINE [Suspect]
     Active Substance: FLUDARABINE PHOSPHATE
     Indication: Product used for unknown indication
     Dosage: UNK
     Route: 065
     Dates: start: 20240718, end: 20240722
  6. LIFILEUCEL [Suspect]
     Active Substance: LIFILEUCEL
     Indication: Product used for unknown indication
     Dosage: UNK
     Route: 065
     Dates: start: 20240723

REACTIONS (3)
  - Laryngeal oedema [Recovered/Resolved]
  - Pyrexia [Unknown]
  - Chills [Unknown]

NARRATIVE: CASE EVENT DATE: 20240724
